FAERS Safety Report 6152139-0 (Version None)
Quarter: 2009Q2

REPORT INFORMATION
  Report Type: 
  Country: None (occurrence: None)
  Receive Date: 20090410
  Receipt Date: 20090401
  Transmission Date: 20091009
  Serious: Yes (Other)
  Sender: FDA-Public Use
  Company Number: DE-GENENTECH-280435

PATIENT

DRUGS (4)
  1. MABTHERA [Suspect]
     Indication: B-CELL LYMPHOMA
     Dosage: 375 MG/M2, Q4W
     Route: 042
  2. FLUDARABINE [Suspect]
     Indication: B-CELL LYMPHOMA
     Dosage: 25 MG/M2, Q4W
     Route: 042
  3. CYCLOPHOSPHAMIDE [Suspect]
     Indication: B-CELL LYMPHOMA
     Dosage: 200 MG/M2, Q4W
     Route: 041
  4. MITOXANTRONE [Suspect]
     Indication: B-CELL LYMPHOMA
     Dosage: 8 MG/M2, Q4W
     Route: 042

REACTIONS (1)
  - HYPERSENSITIVITY [None]
